FAERS Safety Report 23874122 (Version 1)
Quarter: 2024Q2

REPORT INFORMATION
  Report Type: Spontaneous
  Country: US (occurrence: US)
  Receive Date: 20240520
  Receipt Date: 20240520
  Transmission Date: 20240716
  Serious: Yes (Hospitalization)
  Sender: FDA-Public Use
  Company Number: US-GSKCCFUS-Case-02012781_AE-111717

PATIENT

DRUGS (1)
  1. BREO ELLIPTA [Suspect]
     Active Substance: FLUTICASONE FUROATE\VILANTEROL TRIFENATATE
     Indication: Product used for unknown indication
     Dosage: UNK, 100/25MCG

REACTIONS (4)
  - Hospitalisation [Unknown]
  - Product dose omission issue [Unknown]
  - Wrong technique in device usage process [Unknown]
  - Product complaint [Unknown]

NARRATIVE: CASE EVENT DATE: 20240512
